FAERS Safety Report 7883597-9 (Version None)
Quarter: 2011Q4

REPORT INFORMATION
  Report Type: 
  Country: None (occurrence: None)
  Receive Date: 20111102
  Receipt Date: 20111027
  Transmission Date: 20120403
  Serious: Yes (Hospitalization)
  Sender: FDA-Public Use
  Company Number: FR-BRISTOL-MYERS SQUIBB COMPANY-15981400

PATIENT
  Age: 79 Year
  Sex: Male
  Weight: 80 kg

DRUGS (6)
  1. REMICADE [Suspect]
     Dates: start: 20110824
  2. CHONDROSULF [Concomitant]
  3. ASPIRIN [Concomitant]
  4. IPILIMUMAB [Suspect]
     Indication: MALIGNANT MELANOMA
     Dosage: 2ND INFU:12JUL11 5MG/ML
     Route: 042
     Dates: start: 20110622, end: 20110101
  5. EZETIMIBE [Concomitant]
  6. DIGOXIN [Concomitant]

REACTIONS (3)
  - COLITIS [None]
  - DECREASED APPETITE [None]
  - WEIGHT DECREASED [None]
